FAERS Safety Report 24997149 (Version 1)
Quarter: 2025Q1

REPORT INFORMATION
  Report Type: Spontaneous
  Country: FR (occurrence: FR)
  Receive Date: 20250221
  Receipt Date: 20250221
  Transmission Date: 20250409
  Serious: Yes (Hospitalization, Other)
  Sender: B BRAUN
  Company Number: FR-B.Braun Medical Inc.-2171605

PATIENT
  Age: 55 Year
  Sex: Male

DRUGS (6)
  1. BUPIVACAINE HYDROCHLORIDE [Suspect]
     Active Substance: BUPIVACAINE HYDROCHLORIDE
     Indication: Varicose vein operation
     Dates: start: 20240208, end: 20240208
  2. LIDOCAINE [Suspect]
     Active Substance: LIDOCAINE
  3. INNOHEP [Suspect]
     Active Substance: TINZAPARIN SODIUM
  4. KETOPROFEN [Suspect]
     Active Substance: KETOPROFEN
  5. SUFENTANIL [Suspect]
     Active Substance: SUFENTANIL
  6. EPHEDRINE [Suspect]
     Active Substance: EPHEDRINE

REACTIONS (1)
  - Hepatocellular injury [Recovered/Resolved]
